FAERS Safety Report 20639366 (Version 2)
Quarter: 2022Q2

REPORT INFORMATION
  Report Type: Spontaneous
  Country: US (occurrence: US)
  Receive Date: 20220326
  Receipt Date: 20220429
  Transmission Date: 20220721
  Serious: Yes (Other)
  Sender: FDA-Public Use
  Company Number: US-NOVARTISTESTPH-NVSC2022US066646

PATIENT
  Age: 63 Year
  Sex: Female

DRUGS (2)
  1. BEOVU [Suspect]
     Active Substance: BROLUCIZUMAB-DBLL
     Indication: Neovascular age-related macular degeneration
     Dosage: UNK, (LEFT EYE)
     Route: 065
     Dates: start: 20220118
  2. BEOVU [Suspect]
     Active Substance: BROLUCIZUMAB-DBLL
     Dosage: UNK, (LEFT EYE)
     Route: 065
     Dates: start: 20220308

REACTIONS (5)
  - Iridocyclitis [Recovering/Resolving]
  - Chorioretinitis [Recovering/Resolving]
  - Vitreous floaters [Recovering/Resolving]
  - Vision blurred [Unknown]
  - Visual impairment [Recovering/Resolving]

NARRATIVE: CASE EVENT DATE: 20220310
